FAERS Safety Report 20054903 (Version 4)
Quarter: 2022Q3

REPORT INFORMATION
  Report Type: Spontaneous
  Country: US (occurrence: US)
  Receive Date: 20211110
  Receipt Date: 20220708
  Transmission Date: 20221026
  Serious: No
  Sender: FDA-Public Use
  Company Number: US-PFIZER INC-202101374969

PATIENT
  Age: 76 Year
  Sex: Female

DRUGS (1)
  1. SUTENT [Suspect]
     Active Substance: SUNITINIB MALATE
     Dosage: 50 MG
     Dates: start: 20210913

REACTIONS (13)
  - Illness [Unknown]
  - Speech disorder [Unknown]
  - Nausea [Unknown]
  - Pain [Unknown]
  - Diarrhoea [Unknown]
  - Eye swelling [Unknown]
  - Oral pain [Unknown]
  - Dyspnoea [Unknown]
  - Asthenia [Unknown]
  - Hearing disability [Unknown]
  - Tooth disorder [Unknown]
  - Vomiting [Unknown]
  - Back pain [Unknown]
